FAERS Safety Report 8011579-5 (Version None)
Quarter: 2011Q4

REPORT INFORMATION
  Report Type: 
  Country: None (occurrence: None)
  Receive Date: 20111228
  Receipt Date: 20111216
  Transmission Date: 20120403
  Serious: Yes (Other)
  Sender: FDA-Public Use
  Company Number: DE-BRISTOL-MYERS SQUIBB COMPANY-16297293

PATIENT
  Age: 66 Year
  Sex: Male
  Weight: 84 kg

DRUGS (5)
  1. PRAVASTATIN SODIUM [Concomitant]
     Indication: DYSLIPIDAEMIA
  2. SUSTIVA [Suspect]
     Indication: HIV INFECTION
  3. EPIVIR [Suspect]
     Indication: HIV INFECTION
  4. EFFIENT [Suspect]
     Indication: HIV INFECTION
  5. BISOPROLOL [Concomitant]
     Indication: HYPERTENSION
     Dates: start: 20060101, end: 20110101

REACTIONS (2)
  - POLYCYTHAEMIA VERA [None]
  - N-TERMINAL PROHORMONE BRAIN NATRIURETIC PEPTIDE INCREASED [None]
